FAERS Safety Report 18263841 (Version 3)
Quarter: 2020Q4

REPORT INFORMATION
  Report Type: Spontaneous
  Country: US (occurrence: US)
  Receive Date: 20200914
  Receipt Date: 20201223
  Transmission Date: 20210113
  Serious: Yes (Hospitalization, Other)
  Sender: FDA-Public Use
  Company Number: US-BAYER-2020-186002

PATIENT
  Age: 66 Year
  Sex: Male

DRUGS (1)
  1. KOGENATE FS [Suspect]
     Active Substance: ANTIHEMOPHILIC FACTOR, HUMAN RECOMBINANT
     Dosage: 2200 IU
     Route: 042

REACTIONS (14)
  - Oedematous kidney [Recovered/Resolved]
  - Arrhythmia [None]
  - Swelling [None]
  - Amyloidosis [Recovered/Resolved]
  - Cardiac dysfunction [Recovered/Resolved]
  - Fatigue [None]
  - Dyspnoea [Recovered/Resolved]
  - Fatigue [Recovered/Resolved]
  - Fluid retention [Recovered/Resolved]
  - Cardiac disorder [None]
  - Pericardial effusion [None]
  - Intra-abdominal fluid collection [Recovered/Resolved]
  - Peripheral swelling [None]
  - Dyspnoea [None]

NARRATIVE: CASE EVENT DATE: 20200822
